FAERS Safety Report 19880181 (Version 1)
Quarter: 2021Q3

REPORT INFORMATION
  Report Type: Report from Study
  Country: MX (occurrence: MX)
  Receive Date: 20210925
  Receipt Date: 20210925
  Transmission Date: 20211014
  Serious: Yes (Other)
  Sender: FDA-Public Use
  Company Number: NVSC2021MX195859

PATIENT
  Sex: Male
  Weight: 78 kg

DRUGS (2)
  1. EXFORGE HCT [Suspect]
     Active Substance: AMLODIPINE BESYLATE\HYDROCHLOROTHIAZIDE\VALSARTAN
     Indication: HYPERTENSION
     Dosage: 1 DF, QD
     Route: 048
  2. EXFORGE HCT [Suspect]
     Active Substance: AMLODIPINE BESYLATE\HYDROCHLOROTHIAZIDE\VALSARTAN
     Indication: BLOOD PRESSURE MEASUREMENT
     Dosage: 1 DF, QD (10 YEARS AGO TO 1 MONTH AGO)
     Route: 048

REACTIONS (5)
  - Visual impairment [Unknown]
  - Fall [Recovered/Resolved]
  - Product use in unapproved indication [Unknown]
  - Cataract [Recovered/Resolved]
  - Blood pressure decreased [Recovered/Resolved]
